FAERS Safety Report 19366986 (Version 1)
Quarter: 2021Q2

REPORT INFORMATION
  Report Type: Spontaneous
  Country: US (occurrence: US)
  Receive Date: 20210603
  Receipt Date: 20210603
  Transmission Date: 20210717
  Serious: Yes (Life-Threatening, Hospitalization, Other)
  Sender: FDA-Public Use
  Company Number: US-TEVA-2021-US-1917472

PATIENT
  Age: 13 Year
  Sex: Female

DRUGS (1)
  1. VINCRISTINE [Suspect]
     Active Substance: VINCRISTINE
     Indication: B PRECURSOR TYPE ACUTE LEUKAEMIA
     Dosage: AS PART OF AALL0433?LIKE THERAPY
     Route: 065

REACTIONS (6)
  - Tuberculosis of central nervous system [Recovered/Resolved]
  - Pancreatitis [Unknown]
  - Neuropathy peripheral [Unknown]
  - Drug-induced liver injury [Unknown]
  - Bacterial infection [Unknown]
  - Tuberculosis [Recovered/Resolved]
